FAERS Safety Report 9844837 (Version 1)
Quarter: 2014Q1

REPORT INFORMATION
  Report Type: Spontaneous
  Country: BR (occurrence: None)
  Receive Date: 20140122
  Receipt Date: 20140122
  Transmission Date: 20141002
  Serious: Yes (Hospitalization)
  Sender: FDA-Public Use
  Company Number: DSU-2014-00087

PATIENT
  Age: 63 Year
  Sex: Female

DRUGS (2)
  1. OLMETEC HCT [Suspect]
     Indication: HYPERTENSION
     Route: 048
     Dates: start: 2010
  2. VITAMINS (VITAMINS NOS) (VITAMINS NOS) [Concomitant]

REACTIONS (3)
  - Mammoplasty [None]
  - Hypotension [None]
  - Drug administration error [None]
